FAERS Safety Report 10041603 (Version 1)
Quarter: 2014Q1

REPORT INFORMATION
  Report Type: Spontaneous
  Country: US (occurrence: US)
  Receive Date: 20140327
  Receipt Date: 20140327
  Transmission Date: 20141002
  Serious: No
  Sender: FDA-Public Use
  Company Number: US-BAYER-2014-044883

PATIENT
  Age: 28 Year
  Sex: Female
  Weight: 104 kg

DRUGS (2)
  1. ALEVE CAPLET [Suspect]
     Indication: TOOTHACHE
     Dosage: UNK
     Route: 048
  2. ALEVE CAPLET [Suspect]
     Indication: TOOTHACHE
     Dosage: 3 DF, UNK
     Route: 048
     Dates: start: 20140321, end: 20140321

REACTIONS (1)
  - Extra dose administered [None]
